FAERS Safety Report 15960582 (Version 1)
Quarter: 2019Q1

REPORT INFORMATION
  Report Type: Spontaneous
  Country: PL (occurrence: PL)
  Receive Date: 20190214
  Receipt Date: 20190214
  Transmission Date: 20190417
  Serious: Yes (Other)
  Sender: FDA-Public Use
  Company Number: PL-AUROBINDO-AUR-APL-2019-006394

PATIENT

DRUGS (1)
  1. AMOXICILLIN+CLAVULANIC ACID [Suspect]
     Active Substance: AMOXICILLIN\CLAVULANIC ACID
     Indication: LIMB INJURY
     Dosage: UNK
     Route: 065

REACTIONS (8)
  - Soft tissue swelling [Unknown]
  - Erythema [Unknown]
  - Skin necrosis [Unknown]
  - Back pain [Unknown]
  - Pruritus [Unknown]
  - Skin swelling [Unknown]
  - Arthralgia [Unknown]
  - Dermatitis [Unknown]
